FAERS Safety Report 18893739 (Version 1)
Quarter: 2021Q1

REPORT INFORMATION
  Report Type: Spontaneous
  Country: US (occurrence: US)
  Receive Date: 20210215
  Receipt Date: 20210215
  Transmission Date: 20210420
  Serious: Yes (Other)
  Sender: FDA-Public Use
  Company Number: US-BAXTER-2021BAX002715

PATIENT
  Age: 28 Year
  Sex: Female

DRUGS (8)
  1. CYCLOPHOSPHAMIDE FOR INJECTION, USP [Suspect]
     Active Substance: CYCLOPHOSPHAMIDE
     Indication: NEUROFIBROSARCOMA
     Dosage: CYCLICAL
     Route: 065
  2. DOXIL [Suspect]
     Active Substance: DOXORUBICIN HYDROCHLORIDE
     Indication: METASTASES TO LUNG
  3. IFEX [Suspect]
     Active Substance: IFOSFAMIDE
     Indication: METASTASES TO LUNG
     Dosage: CYCLICAL
     Route: 065
  4. VINCRISTINE [Suspect]
     Active Substance: VINCRISTINE
     Indication: METASTASES TO LUNG
  5. IFEX [Suspect]
     Active Substance: IFOSFAMIDE
     Indication: NEUROFIBROSARCOMA
  6. DOXIL [Suspect]
     Active Substance: DOXORUBICIN HYDROCHLORIDE
     Indication: NEUROFIBROSARCOMA
     Dosage: CYCLICAL (2 C ? 2); CYCLICAL
     Route: 065
  7. VINCRISTINE [Suspect]
     Active Substance: VINCRISTINE
     Indication: NEUROFIBROSARCOMA
     Dosage: CYCLICAL
     Route: 065
  8. CYCLOPHOSPHAMIDE FOR INJECTION, USP [Suspect]
     Active Substance: CYCLOPHOSPHAMIDE
     Indication: METASTASES TO LUNG

REACTIONS (4)
  - Fungaemia [Unknown]
  - Fungal infection [Unknown]
  - Thrombocytopenia [Unknown]
  - Neutropenia [Unknown]
